FAERS Safety Report 5800593-3 (Version None)
Quarter: 2008Q3

REPORT INFORMATION
  Report Type: 
  Country: None (occurrence: None)
  Receive Date: 20080702
  Receipt Date: 20080702
  Transmission Date: 20090109
  Serious: Yes (Other)
  Sender: FDA-Public Use
  Company Number: None

PATIENT
  Age: 61 Year
  Sex: Female
  Weight: 68.0396 kg

DRUGS (4)
  1. ABILIFY [Suspect]
     Indication: DEPRESSION
     Dosage: 2.5 1X DAILY PO
     Route: 048
     Dates: start: 20080401, end: 20080601
  2. ABILIFY [Suspect]
     Indication: OBSESSIVE-COMPULSIVE DISORDER
     Dosage: 2.5 1X DAILY PO
     Route: 048
     Dates: start: 20080401, end: 20080601
  3. ABILIFY [Suspect]
     Indication: DEPRESSION
     Dosage: 2.5 1X DAILY PO
     Route: 048
     Dates: start: 20080501, end: 20080601
  4. ABILIFY [Suspect]
     Indication: OBSESSIVE-COMPULSIVE DISORDER
     Dosage: 2.5 1X DAILY PO
     Route: 048
     Dates: start: 20080501, end: 20080601

REACTIONS (3)
  - BLOOD GLUCOSE INCREASED [None]
  - METABOLIC DISORDER [None]
  - WEIGHT INCREASED [None]
